FAERS Safety Report 8217349-7 (Version None)
Quarter: 2012Q1

REPORT INFORMATION
  Report Type: 
  Country: None (occurrence: None)
  Receive Date: 20120315
  Receipt Date: 20120302
  Transmission Date: 20120608
  Serious: Yes (Hospitalization)
  Sender: FDA-Public Use
  Company Number: TPA2012A01184

PATIENT
  Age: 42 Year
  Sex: Female
  Weight: 50.8029 kg

DRUGS (7)
  1. SOMA [Concomitant]
  2. DILAUDID [Concomitant]
  3. CLONAZEPAM [Concomitant]
  4. TAGAMET [Concomitant]
  5. DEXILANT [Suspect]
     Indication: GASTROOESOPHAGEAL REFLUX DISEASE
     Dosage: 60 MG, 1 IN 1 D, PER ORAL
     Route: 048
     Dates: start: 20110101
  6. AMBIEN [Concomitant]
  7. GAVISCON(SODIUM BICARBONATE, ALUMINIUM HYDROXIDE GEL, DRIED, ALGINIC A [Concomitant]

REACTIONS (12)
  - ENDOMETRIOSIS [None]
  - DECREASED APPETITE [None]
  - ERUCTATION [None]
  - MYALGIA [None]
  - INSOMNIA [None]
  - BACK PAIN [None]
  - BONE PAIN [None]
  - ANXIETY [None]
  - NAUSEA [None]
  - DEPRESSION [None]
  - LIBIDO DISORDER [None]
  - MUSCLE SPASMS [None]
